FAERS Safety Report 9144649 (Version 2)
Quarter: 2013Q2

REPORT INFORMATION
  Report Type: Spontaneous
  Country: US (occurrence: US)
  Receive Date: 20130306
  Receipt Date: 20130405
  Transmission Date: 20140414
  Serious: Yes (Hospitalization)
  Sender: FDA-Public Use
  Company Number: US-GILEAD-2013-0071024

PATIENT
  Age: 62 Year
  Sex: Female

DRUGS (2)
  1. LETAIRIS [Suspect]
     Indication: PRODUCT USED FOR UNKNOWN INDICATION
     Dosage: 10 MG, UNK
  2. LETAIRIS [Suspect]

REACTIONS (6)
  - Liver disorder [Unknown]
  - Hepatic function abnormal [Unknown]
  - Ammonia increased [Unknown]
  - Localised infection [Unknown]
  - Vomiting [Unknown]
  - Local swelling [Unknown]
